FAERS Safety Report 5894148-2 (Version None)
Quarter: 2008Q3

REPORT INFORMATION
  Report Type: 
  Country: None (occurrence: None)
  Receive Date: 20080923
  Receipt Date: 20080709
  Transmission Date: 20090109
  Serious: No
  Sender: FDA-Public Use
  Company Number: US-ASTRAZENECA-2008UW02251

PATIENT
  Age: 47 Year
  Sex: Female
  Weight: 63.2 kg

DRUGS (4)
  1. SEROQUEL [Suspect]
     Indication: DEPRESSION
     Dosage: VARIOUS INCLUDING BUT NOT LIMITED TO 300 MG
     Route: 048
     Dates: start: 20051201, end: 20060601
  2. SEROQUEL [Suspect]
     Indication: SLEEP DISORDER
     Dosage: VARIOUS INCLUDING BUT NOT LIMITED TO 300 MG
     Route: 048
     Dates: start: 20051201, end: 20060601
  3. ABILIFY [Concomitant]
     Dates: start: 20040101
  4. WELLBUTRIN [Concomitant]
     Dates: start: 20060101

REACTIONS (6)
  - BLINDNESS [None]
  - DIABETES MELLITUS [None]
  - GAIT DISTURBANCE [None]
  - HYPERTENSION [None]
  - ILL-DEFINED DISORDER [None]
  - OVERDOSE [None]
